FAERS Safety Report 16822129 (Version 1)
Quarter: 2019Q4

REPORT INFORMATION
  Report Type: Spontaneous
  Country: US (occurrence: US)
  Receive Date: 20190918
  Receipt Date: 20190918
  Transmission Date: 20200122
  Serious: Yes (Hospitalization)
  Sender: FDA-Public Use
  Company Number: None

PATIENT
  Age: 88 Year
  Sex: Male
  Weight: 76.2 kg

DRUGS (1)
  1. SPRYCEL [Suspect]
     Active Substance: DASATINIB
     Indication: PLASMA CELL MYELOMA
     Route: 048
     Dates: start: 20180625, end: 20190918

REACTIONS (3)
  - Gout [None]
  - Pulmonary oedema [None]
  - Cellulitis [None]

NARRATIVE: CASE EVENT DATE: 20190918
